FAERS Safety Report 5748474-8 (Version None)
Quarter: 2008Q2

REPORT INFORMATION
  Report Type: 
  Country: None (occurrence: None)
  Receive Date: 20080523
  Receipt Date: 20080515
  Transmission Date: 20081010
  Serious: Yes (Death)
  Sender: FDA-Public Use
  Company Number: DE-PFIZER INC-2008041493

PATIENT
  Age: 75 Year
  Sex: Male

DRUGS (1)
  1. ZELDOX (CAPSULES) [Suspect]
     Route: 048

REACTIONS (1)
  - ASPIRATION [None]
